FAERS Safety Report 16017077 (Version 1)
Quarter: 2019Q1

REPORT INFORMATION
  Report Type: Spontaneous
  Country: US (occurrence: US)
  Receive Date: 20190131
  Receipt Date: 20190131
  Transmission Date: 20190418
  Serious: No
  Sender: FDA-Public Use
  Company Number: None

PATIENT
  Age: 39 Year
  Sex: Female

DRUGS (1)
  1. CETROTIDE KIT 0.25MG [Suspect]
     Active Substance: CETRORELIX ACETATE
     Dosage: ?          OTHER DOSE:0.25MG;?
     Route: 058
     Dates: start: 20190128

REACTIONS (2)
  - Injection site erythema [None]
  - Injection site inflammation [None]

NARRATIVE: CASE EVENT DATE: 20190131
